FAERS Safety Report 22109913 (Version 1)
Quarter: 2023Q1

REPORT INFORMATION
  Report Type: Spontaneous
  Country: IN (occurrence: IN)
  Receive Date: 20230317
  Receipt Date: 20230317
  Transmission Date: 20230417
  Serious: Yes (Hospitalization)
  Sender: FDA-Public Use
  Company Number: IN-TORRENT-00003232

PATIENT
  Age: 21 Year
  Sex: Male

DRUGS (2)
  1. OLANZAPINE [Suspect]
     Active Substance: OLANZAPINE
     Indication: Psychotic behaviour
     Dosage: 7.5 MG INCREASED TO 10 MG
     Route: 065
  2. LORAZEPAM [Suspect]
     Active Substance: LORAZEPAM
     Indication: Sleep disorder
     Dosage: 2 MG HS
     Route: 065

REACTIONS (3)
  - Social avoidant behaviour [Recovered/Resolved]
  - Blunted affect [Recovered/Resolved]
  - Apathy [Recovered/Resolved]
